FAERS Safety Report 6529033-6 (Version None)
Quarter: 2009Q4

REPORT INFORMATION
  Report Type: 
  Country: None (occurrence: None)
  Receive Date: 20091229
  Receipt Date: 20091215
  Transmission Date: 20100525
  Serious: Yes (Hospitalization)
  Sender: FDA-Public Use
  Company Number: 2009AP005070

PATIENT
  Age: 85 Year
  Sex: Male

DRUGS (13)
  1. RAMIPRIL [Suspect]
     Dosage: PO
     Route: 048
  2. CHANTIX [Suspect]
     Dosage: 0.5 MG;PO;BID
     Route: 048
  3. ASPIRIN [Concomitant]
  4. ALENDRONIC ACID (ALENDRONIC ACID) [Concomitant]
  5. ALL OTHER THERAPEUTIC PRODUCTS (ALL OTHER THERAPEUTIC PRODUCTS) [Concomitant]
  6. DILTIAZEM [Concomitant]
  7. GLYCERYL TRINITRATE (GLYCERYL TRINITRATE) [Concomitant]
  8. LANSOPRAZOLE [Concomitant]
  9. PREDNISOLONE [Concomitant]
  10. QUININE SULFATE [Concomitant]
  11. FLUTICASONE PROPIONATE [Concomitant]
  12. SALMETEROL XINAFOATE (SALMETEROL XINAFOATE) [Concomitant]
  13. SIMVASTATIN [Concomitant]

REACTIONS (3)
  - AMNESIA [None]
  - HEAD INJURY [None]
  - SYNCOPE [None]
